FAERS Safety Report 21328322 (Version 4)
Quarter: 2022Q4

REPORT INFORMATION
  Report Type: Spontaneous
  Country: US (occurrence: US)
  Receive Date: 20220913
  Receipt Date: 20221208
  Transmission Date: 20230113
  Serious: Yes (Other)
  Sender: FDA-Public Use
  Company Number: US-Blueprint Medicines Corporation-409

PATIENT
  Age: 73 Year
  Sex: Female

DRUGS (4)
  1. AYVAKIT [Suspect]
     Active Substance: AVAPRITINIB
     Indication: Systemic mastocytosis
     Route: 065
     Dates: start: 20220211
  2. AYVAKIT [Suspect]
     Active Substance: AVAPRITINIB
     Route: 065
     Dates: start: 20220131
  3. AYVAKIT [Suspect]
     Active Substance: AVAPRITINIB
     Route: 065
     Dates: start: 20220420, end: 202204
  4. AYVAKIT [Suspect]
     Active Substance: AVAPRITINIB
     Route: 065
     Dates: start: 20220211

REACTIONS (28)
  - Mucous stools [Recovering/Resolving]
  - Weight decreased [Unknown]
  - Gastrooesophageal reflux disease [Recovering/Resolving]
  - Appetite disorder [Recovering/Resolving]
  - Discomfort [Recovering/Resolving]
  - Haematochezia [Recovered/Resolved]
  - Cough [Not Recovered/Not Resolved]
  - Alopecia [Recovered/Resolved]
  - Sensation of foreign body [Unknown]
  - Visual impairment [Unknown]
  - Dyspepsia [Unknown]
  - Balance disorder [Unknown]
  - Toxicity to various agents [Unknown]
  - Gait disturbance [Unknown]
  - Proctalgia [Recovering/Resolving]
  - Feeling abnormal [Unknown]
  - Nausea [Recovering/Resolving]
  - Diarrhoea [Unknown]
  - Asthenia [Recovering/Resolving]
  - Dizziness [Unknown]
  - Fatigue [Recovering/Resolving]
  - Memory impairment [Unknown]
  - Amnesia [Unknown]
  - Dyspnoea [Unknown]
  - Lacrimation increased [Unknown]
  - Anxiety [Unknown]
  - Product dose omission in error [Unknown]
  - Increased tendency to bruise [Unknown]

NARRATIVE: CASE EVENT DATE: 20220907
